FAERS Safety Report 26049269 (Version 1)
Quarter: 2025Q4

REPORT INFORMATION
  Report Type: Spontaneous
  Country: US (occurrence: US)
  Receive Date: 20251115
  Receipt Date: 20251115
  Transmission Date: 20260118
  Serious: Yes (Life-Threatening, Hospitalization, Other)
  Sender: MACLEODS
  Company Number: US-MACLEODS PHARMA-MAC2025056325

PATIENT

DRUGS (2)
  1. LIDOCAINE [Suspect]
     Active Substance: LIDOCAINE
     Indication: Local anaesthesia
     Dosage: 25-30 ML 4%  TOPICAL LIDOCAINE
     Route: 061
  2. LIDOCAINE [Suspect]
     Active Substance: LIDOCAINE
     Dosage: 20-30 ML 2% TOPICAL,TOTAL OF 3000 MG (36 MG/KG)
     Route: 061

REACTIONS (15)
  - Local anaesthetic systemic toxicity [Recovered/Resolved]
  - Dysarthria [Recovered/Resolved]
  - Hypoxia [Recovered/Resolved]
  - Unresponsive to stimuli [Recovered/Resolved]
  - Seizure [Recovered/Resolved]
  - Acute kidney injury [Recovered/Resolved with Sequelae]
  - Renal tubular necrosis [Recovered/Resolved with Sequelae]
  - Aggression [Recovered/Resolved]
  - Agonal respiration [Recovered/Resolved]
  - Mydriasis [Recovered/Resolved]
  - Pulse absent [Recovered/Resolved]
  - Respiratory failure [Recovered/Resolved]
  - Bradycardia [Recovered/Resolved]
  - Confusional state [Recovered/Resolved]
  - Overdose [Unknown]
